FAERS Safety Report 9370757 (Version 1)
Quarter: 2013Q2

REPORT INFORMATION
  Report Type: Spontaneous
  Country: US (occurrence: US)
  Receive Date: 20130626
  Receipt Date: 20130626
  Transmission Date: 20140414
  Serious: No
  Sender: FDA-Public Use
  Company Number: US-TARO-2013P1004490

PATIENT
  Age: 35 Year
  Sex: Female
  Weight: 73.48 kg

DRUGS (7)
  1. ACETAZOLAMIDE [Suspect]
     Route: 048
     Dates: start: 201212, end: 201303
  2. ACETAZOLAMIDE [Suspect]
     Route: 048
     Dates: start: 201212, end: 201303
  3. ACETAZOLAMIDE [Suspect]
     Route: 048
     Dates: start: 201303, end: 2013
  4. ACETAZOLAMIDE [Suspect]
     Route: 048
     Dates: start: 201303, end: 2013
  5. ACETAZOLAMIDE [Suspect]
     Route: 048
     Dates: start: 2013, end: 20130403
  6. ACETAZOLAMIDE [Suspect]
     Route: 048
     Dates: start: 2013, end: 20130403
  7. GABAPENTIN [Suspect]
     Dates: start: 20130214, end: 201303

REACTIONS (4)
  - Dizziness postural [Not Recovered/Not Resolved]
  - Abasia [Recovering/Resolving]
  - Drug interaction [Unknown]
  - Off label use [Unknown]
